FAERS Safety Report 8698690 (Version 2)
Quarter: 2013Q1

REPORT INFORMATION
  Report Type: Report from Study
  Country: US (occurrence: US)
  Receive Date: 20120802
  Receipt Date: 20130211
  Transmission Date: 20140127
  Serious: Yes (Hospitalization)
  Sender: FDA-Public Use
  Company Number: US-ABBOTT-12P-163-0961249-00

PATIENT
  Age: 31 None
  Sex: Female

DRUGS (15)
  1. HUMIRA 40 MG/0.8 ML PEN [Suspect]
     Indication: CROHN^S DISEASE
     Route: 058
     Dates: start: 20110615
  2. EFFEXOR [Concomitant]
     Indication: DEPRESSION
  3. IMODIUM [Concomitant]
     Indication: CROHN^S DISEASE
  4. PROTONIX [Concomitant]
     Indication: CROHN^S DISEASE
  5. SYNTHROID [Concomitant]
     Indication: HYPOTHYROIDISM
  6. ZOFRAN [Concomitant]
     Indication: CROHN^S DISEASE
  7. FENTANYL [Concomitant]
     Indication: PAIN
  8. OXYCODONE [Concomitant]
     Indication: PAIN
  9. BENTYL [Concomitant]
     Indication: CROHN^S DISEASE
  10. TRAMADOL [Concomitant]
     Indication: CROHN^S DISEASE
  11. TRALAC [Concomitant]
     Indication: PRODUCT USED FOR UNKNOWN INDICATION
  12. DEPO PROVERA [Concomitant]
     Indication: PRODUCT USED FOR UNKNOWN INDICATION
  13. VITAMINS [Concomitant]
     Indication: VITAMIN SUPPLEMENTATION
  14. RELPAX [Concomitant]
     Indication: PRODUCT USED FOR UNKNOWN INDICATION
  15. VITAMIN B [Concomitant]
     Indication: VITAMIN SUPPLEMENTATION

REACTIONS (7)
  - Fistula [Unknown]
  - Dehydration [Recovered/Resolved]
  - Dehydration [Recovered/Resolved]
  - Decreased appetite [Recovered/Resolved]
  - Dizziness [Recovered/Resolved]
  - Unevaluable event [Recovered/Resolved]
  - Drug ineffective [Unknown]
